FAERS Safety Report 5104628-5 (Version None)
Quarter: 2006Q3

REPORT INFORMATION
  Report Type: 
  Country: None (occurrence: None)
  Receive Date: 20060911
  Receipt Date: 20060828
  Transmission Date: 20061208
  Serious: Yes (Hospitalization)
  Sender: FDA-Public Use
  Company Number: DE200608003526

PATIENT
  Age: 16 Day
  Sex: 0
  Weight: 2.4 kg

DRUGS (1)
  1. ZYPREXA [Suspect]

REACTIONS (3)
  - DRUG EXPOSURE DURING PREGNANCY [None]
  - POOR SUCKING REFLEX [None]
  - SMALL FOR DATES BABY [None]
